FAERS Safety Report 8624458-7 (Version None)
Quarter: 2012Q3

REPORT INFORMATION
  Report Type: 
  Country: None (occurrence: None)
  Receive Date: 20120827
  Receipt Date: 20120817
  Transmission Date: 20120928
  Serious: Yes (Other)
  Sender: FDA-Public Use
  Company Number: US-MUTUAL PHARMACEUTICAL COMPANY, INC.-CLCY20120120

PATIENT
  Age: 47 Year
  Sex: Male

DRUGS (1)
  1. COLCRYS [Suspect]
     Indication: GOUT
     Route: 065

REACTIONS (2)
  - JUDGEMENT IMPAIRED [None]
  - ROAD TRAFFIC ACCIDENT [None]
